FAERS Safety Report 20528867 (Version 2)
Quarter: 2022Q1

REPORT INFORMATION
  Report Type: Spontaneous
  Country: RU (occurrence: RU)
  Receive Date: 20220228
  Receipt Date: 20220304
  Transmission Date: 20220423
  Serious: Yes (Other)
  Sender: FDA-Public Use
  Company Number: RU-VERTEX PHARMACEUTICALS-2022-003178

PATIENT
  Age: 15 Year
  Sex: Female
  Weight: 25 kg

DRUGS (1)
  1. ORKAMBI [Suspect]
     Active Substance: IVACAFTOR\LUMACAFTOR
     Indication: Cystic fibrosis
     Dosage: 2 TABLETS (200MG + 125MG EACH) Q12HRS
     Route: 048
     Dates: start: 20211224, end: 20220129

REACTIONS (5)
  - Headache [Unknown]
  - Respiratory failure [Unknown]
  - Blood pressure increased [Unknown]
  - Chest pain [Unknown]
  - Abdominal pain [Unknown]

NARRATIVE: CASE EVENT DATE: 20211224
